FAERS Safety Report 4952309-0 (Version None)
Quarter: 2006Q1

REPORT INFORMATION
  Report Type: 
  Country: None (occurrence: None)
  Receive Date: 20060320
  Receipt Date: 20060310
  Transmission Date: 20060701
  Serious: Yes (Other)
  Sender: FDA-Public Use
  Company Number: 2006034366

PATIENT
  Age: 17 Year
  Sex: Male

DRUGS (1)
  1. DRAMAMINE [Suspect]
     Dosage: 8 TABLETS AT A TIME, ORAL
     Route: 048

REACTIONS (2)
  - OVERDOSE [None]
  - UNEVALUABLE EVENT [None]
